FAERS Safety Report 6989985-7 (Version None)
Quarter: 2010Q3

REPORT INFORMATION
  Report Type: 
  Country: None (occurrence: None)
  Receive Date: 20100916
  Receipt Date: 20100408
  Transmission Date: 20110219
  Serious: Yes (Other)
  Sender: FDA-Public Use
  Company Number: US-PFIZER INC-2010045422

PATIENT
  Sex: Female
  Weight: 117.46 kg

DRUGS (5)
  1. LYRICA [Suspect]
     Indication: FIBROMYALGIA
     Dosage: 50 MG, 2X/DAY
     Dates: start: 20100406
  2. MILNACIPRAN [Concomitant]
     Indication: FIBROMYALGIA
     Dosage: UNK
  3. CYMBALTA [Concomitant]
     Dosage: UNK
  4. PRILOSEC [Concomitant]
     Dosage: UNK
  5. ALLEGRA [Concomitant]
     Dosage: UNK

REACTIONS (3)
  - ANXIETY [None]
  - HOMICIDAL IDEATION [None]
  - SUICIDAL IDEATION [None]
